FAERS Safety Report 8969595 (Version 1)
Quarter: 2012Q4

REPORT INFORMATION
  Report Type: 
  Country: US (occurrence: US)
  Receive Date: 20121218
  Receipt Date: 20121218
  Transmission Date: 20130627
  Serious: No
  Sender: FDA-Public Use
  Company Number: US-BRISTOL-MYERS SQUIBB COMPANY-16614406

PATIENT
  Age: 70 Year
  Sex: Female

DRUGS (3)
  1. ABILIFY [Suspect]
     Indication: BIPOLAR II DISORDER
     Dosage: Dose titrated to 2.5mg
  2. ABILIFY [Suspect]
     Indication: DEPRESSION
     Dosage: Dose titrated to 2.5mg
  3. ABILIFY [Suspect]
     Indication: MANIA
     Dosage: Dose titrated to 2.5mg

REACTIONS (2)
  - Weight increased [Unknown]
  - Tardive dyskinesia [Unknown]
